FAERS Safety Report 4654070-6 (Version None)
Quarter: 2005Q2

REPORT INFORMATION
  Report Type: 
  Country: None (occurrence: None)
  Receive Date: 20050404
  Receipt Date: 20050201
  Transmission Date: 20051028
  Serious: No
  Sender: FDA-Public Use
  Company Number: USA050187979

PATIENT
  Age: 40 Year
  Sex: Female
  Weight: 107 kg

DRUGS (3)
  1. CYMBALTA [Suspect]
     Indication: DEPRESSION
     Dosage: 60 MG DAY
     Dates: start: 20041001, end: 20041223
  2. MULTIVITAMINS NOS (MULTIVITAMINS NOS) [Concomitant]
  3. CALCIUM GLUCONATE [Concomitant]

REACTIONS (2)
  - INCREASED TENDENCY TO BRUISE [None]
  - THROMBOPHLEBITIS SUPERFICIAL [None]
